FAERS Safety Report 4779474-2 (Version None)
Quarter: 2005Q3

REPORT INFORMATION
  Report Type: 
  Country: None (occurrence: None)
  Receive Date: 20050922
  Receipt Date: 20050426
  Transmission Date: 20060218
  Serious: Yes (Other)
  Sender: FDA-Public Use
  Company Number: 2005067323

PATIENT
  Sex: Female

DRUGS (3)
  1. ZYRTEC [Suspect]
     Indication: URTICARIA
  2. ALPRAZOLAM [Concomitant]
  3. PAROXETINE HYDROCHLORIE (PAROXETINE HYDROCHLORIDE) [Concomitant]

REACTIONS (4)
  - ANAPHYLACTIC REACTION [None]
  - ANGIONEUROTIC OEDEMA [None]
  - DYSPNOEA [None]
  - SWELLING FACE [None]
